FAERS Safety Report 6962659-4 (Version None)
Quarter: 2010Q3

REPORT INFORMATION
  Report Type: 
  Country: None (occurrence: None)
  Receive Date: 20100831
  Receipt Date: 20100820
  Transmission Date: 20110219
  Serious: Yes (Hospitalization, Other)
  Sender: FDA-Public Use
  Company Number: 2010US003391

PATIENT
  Age: 42 Year
  Sex: Female
  Weight: 76 kg

DRUGS (12)
  1. PROGRAF [Suspect]
     Indication: RENAL TRANSPLANT
     Dosage: 2 MG BID ORAL
     Route: 048
     Dates: start: 20000802
  2. CELLCEPT (MYCOPHANOLATE MOFETIL) [Concomitant]
  3. REGLAN [Concomitant]
  4. ASPIRIN [Concomitant]
  5. PLAVIX [Concomitant]
  6. NOVOLOG (INUSLIN ASPART) [Concomitant]
  7. LANTUS [Concomitant]
  8. LORTAB [Concomitant]
  9. VITAMIN B12 NOS (VITAMIN B12 NOS) [Concomitant]
  10. ZOFRAN [Concomitant]
  11. MIDORINE (MIDODRING HYDROCHLORIDE) [Concomitant]
  12. SODIUM BICARBONATE IN PLASTIC CONTAINER [Concomitant]

REACTIONS (1)
  - CARDIAC DISORDER [None]
